FAERS Safety Report 9525566 (Version 1)
Quarter: 2013Q3

REPORT INFORMATION
  Report Type: Spontaneous
  Country: IE (occurrence: IE)
  Receive Date: 20130916
  Receipt Date: 20130916
  Transmission Date: 20140515
  Serious: Yes (Hospitalization, Other)
  Sender: FDA-Public Use
  Company Number: IE-BAYER-2013-109439

PATIENT
  Age: 45 Year
  Sex: Male

DRUGS (5)
  1. MOXIFLOXACIN ORAL [Suspect]
     Indication: PULMONARY TUBERCULOSIS
     Dosage: UNK
  2. MOXIFLOXACIN ORAL [Suspect]
     Indication: PULMONARY TUBERCULOSIS
  3. ISONIAZID [Concomitant]
     Indication: PULMONARY TUBERCULOSIS
  4. RIFAMPICIN [Concomitant]
     Indication: PULMONARY TUBERCULOSIS
  5. PYRIDOXINE [Concomitant]
     Indication: PULMONARY TUBERCULOSIS

REACTIONS (9)
  - Meningitis aseptic [Recovered/Resolved]
  - Headache [Recovered/Resolved]
  - Pruritus [Recovered/Resolved]
  - Nausea [Recovered/Resolved]
  - Hyperhidrosis [Recovered/Resolved]
  - Photophobia [Recovered/Resolved]
  - Tachycardia [Recovered/Resolved]
  - Rash macular [Recovered/Resolved]
  - Type III immune complex mediated reaction [Recovered/Resolved]
